FAERS Safety Report 16944870 (Version 1)
Quarter: 2019Q4

REPORT INFORMATION
  Report Type: Spontaneous
  Country: US (occurrence: US)
  Receive Date: 20191022
  Receipt Date: 20191022
  Transmission Date: 20200122
  Serious: No
  Sender: FDA-Public Use
  Company Number: US-KYOWAKIRIN-2019BKK005805

PATIENT

DRUGS (10)
  1. CRYSVITA [Suspect]
     Active Substance: BUROSUMAB-TWZA
     Dosage: 60 MG (2 30 MG/ML VIALS), 1 IN 4 WEEKS (ONCE MONTHLY)
     Route: 058
     Dates: start: 20190513, end: 20190513
  2. CRYSVITA [Suspect]
     Active Substance: BUROSUMAB-TWZA
     Dosage: 60 MG (2 30 MG/ML VIALS), 1 IN 4 WEEKS (ONCE MONTHLY)
     Route: 058
     Dates: start: 20190205, end: 20190205
  3. VITAMIN D2 [Suspect]
     Active Substance: ERGOCALCIFEROL
     Dosage: 1 CAPSULE, TWICE A WEEK (ON MONDAYS AND THURSDAY)
     Route: 065
     Dates: start: 201901
  4. CRYSVITA [Suspect]
     Active Substance: BUROSUMAB-TWZA
     Indication: HEREDITARY HYPOPHOSPHATAEMIC RICKETS
     Dosage: 30 MG, 1X/4 WEEKS (ONCE MONTHLY)
     Route: 058
     Dates: start: 20181203, end: 20181203
  5. AMOXICILLIN. [Concomitant]
     Active Substance: AMOXICILLIN
     Indication: PRODUCT USED FOR UNKNOWN INDICATION
     Dosage: 1 TABLET, TID
     Route: 065
     Dates: start: 2019
  6. CRYSVITA [Suspect]
     Active Substance: BUROSUMAB-TWZA
     Dosage: 60 MG (2 30 MG/ML VIALS), 1 IN 4 WEEKS (ONCE MONTHLY)
     Route: 058
     Dates: start: 20190103, end: 20190103
  7. CRYSVITA [Suspect]
     Active Substance: BUROSUMAB-TWZA
     Dosage: 30 MG, 1X/4 WEEKS (ONCE MONTHLY)
     Route: 058
     Dates: start: 20190415, end: 20190415
  8. CRYSVITA [Suspect]
     Active Substance: BUROSUMAB-TWZA
     Dosage: 30 MG, 1X/4 WEEKS (ONCE MONTHLY)
     Route: 058
     Dates: start: 20190415, end: 20190415
  9. VITAMIN D2 [Suspect]
     Active Substance: ERGOCALCIFEROL
     Indication: VITAMIN D DEFICIENCY
     Dosage: 1 CAPSULE WEEKLY ON SUNDAYS/ONCE A WEEK
     Route: 065
     Dates: start: 2019
  10. CRYSVITA [Suspect]
     Active Substance: BUROSUMAB-TWZA
     Dosage: 60 MG (2 30 MG/ML VIALS), 1 IN 4 WEEKS (ONCE MONTHLY)
     Route: 058
     Dates: start: 20190305, end: 20190305

REACTIONS (6)
  - Tooth disorder [Unknown]
  - Poor quality sleep [Recovered/Resolved]
  - Contraindicated product administered [Not Recovered/Not Resolved]
  - Inappropriate schedule of product administration [Unknown]
  - Fatigue [Recovered/Resolved]
  - Vitamin D deficiency [Recovered/Resolved]

NARRATIVE: CASE EVENT DATE: 2019
